FAERS Safety Report 25423443 (Version 1)
Quarter: 2025Q2

REPORT INFORMATION
  Report Type: Spontaneous
  Country: GB (occurrence: GB)
  Receive Date: 20250611
  Receipt Date: 20250611
  Transmission Date: 20250716
  Serious: Yes (Other)
  Sender: ELI LILLY AND COMPANY
  Company Number: None

PATIENT
  Age: 47 Year
  Sex: Female

DRUGS (5)
  1. MOUNJARO [Suspect]
     Active Substance: TIRZEPATIDE
     Indication: Weight control
     Dosage: 5 MG, WEEKLY (1/W)
     Route: 065
     Dates: start: 202503
  2. VITAMIN D NOS [Concomitant]
     Active Substance: CHOLECALCIFEROL\ERGOCALCIFEROL
     Indication: Vitamin D decreased
     Dates: start: 202409
  3. ASPIRIN [Concomitant]
     Active Substance: ASPIRIN
     Indication: Migraine
     Dosage: 75 MG, DAILY
     Dates: start: 202407
  4. ESTRADIOL [Concomitant]
     Active Substance: ESTRADIOL
     Indication: Hormone replacement therapy
     Dates: start: 202412
  5. UTROGESTAN [Concomitant]
     Active Substance: PROGESTERONE
     Indication: Hormone replacement therapy
     Dates: start: 202412

REACTIONS (2)
  - Head titubation [Not Recovered/Not Resolved]
  - Neck pain [Unknown]

NARRATIVE: CASE EVENT DATE: 20250501
